FAERS Safety Report 25905802 (Version 1)
Quarter: 2025Q4

REPORT INFORMATION
  Report Type: Spontaneous
  Country: US (occurrence: None)
  Receive Date: 20251009
  Receipt Date: 20251009
  Transmission Date: 20260118
  Serious: Yes (Other)
  Sender: FDA-CTU
  Company Number: None

PATIENT
  Age: 2 Year
  Sex: Female

DRUGS (1)
  1. DUPIXENT [Suspect]
     Active Substance: DUPILUMAB
     Indication: Dermatitis atopic
     Dosage: 1.14 ML EVEY 4 WEEKS SUBCUTANEOUS
     Route: 058
     Dates: start: 20241104

REACTIONS (1)
  - Rash [None]

NARRATIVE: CASE EVENT DATE: 20250922
